FAERS Safety Report 8254801-2 (Version None)
Quarter: 2012Q2

REPORT INFORMATION
  Report Type: 
  Country: None (occurrence: None)
  Receive Date: 20120403
  Receipt Date: 20120329
  Transmission Date: 20120825
  Serious: Yes (Other)
  Sender: FDA-Public Use
  Company Number: PHEH2007US12136

PATIENT
  Sex: Male

DRUGS (26)
  1. MS CONTIN [Concomitant]
  2. CALCITONIN SALMON [Concomitant]
  3. PERCOCET [Concomitant]
  4. HEP-FLUSH [Concomitant]
  5. KEFLEX [Concomitant]
     Dosage: 500 G, QID
     Route: 048
  6. AREDIA [Suspect]
     Dosage: 90 MG, QMO
     Route: 042
     Dates: start: 20050101, end: 20060801
  7. ZOMETA [Suspect]
     Indication: OSTEOGENESIS IMPERFECTA
     Dosage: 4 MG, QMO
     Route: 042
     Dates: end: 20050101
  8. BIAXIN [Concomitant]
  9. IBUPROFEN [Concomitant]
  10. DURAGESIC-100 [Concomitant]
  11. MORPHINE [Concomitant]
  12. CEFAZOLIN [Concomitant]
  13. OXYCODONE HCL [Concomitant]
  14. AMOXICILLIN [Concomitant]
  15. FOSAMAX [Concomitant]
  16. PRILOSEC [Concomitant]
  17. AREDIA [Suspect]
     Dosage: 60 MG, Q3MO
     Route: 042
     Dates: start: 19991201
  18. OXYCONTIN [Concomitant]
  19. AREDIA [Suspect]
     Dosage: 60 MG, UNK
     Route: 042
     Dates: start: 19990101
  20. LOVENOX [Concomitant]
  21. TYLENOL [Concomitant]
  22. DILAUDID [Concomitant]
  23. NITROGLYCERIN [Concomitant]
  24. VALIUM [Concomitant]
  25. DEMEROL [Concomitant]
  26. LEVAQUIN [Concomitant]

REACTIONS (76)
  - PAIN [None]
  - ORAL PAIN [None]
  - SWELLING FACE [None]
  - AORTIC DILATATION [None]
  - PAIN IN EXTREMITY [None]
  - PATHOLOGICAL FRACTURE [None]
  - FATIGUE [None]
  - EAR PAIN [None]
  - CARDIAC MURMUR [None]
  - OSTEONECROSIS OF JAW [None]
  - PAIN IN JAW [None]
  - JAW FRACTURE [None]
  - SINUS HEADACHE [None]
  - INTERVERTEBRAL DISC DEGENERATION [None]
  - SPINAL FRACTURE [None]
  - NEOPLASM SKIN [None]
  - BONE DENSITY DECREASED [None]
  - WEIGHT INCREASED [None]
  - PALPITATIONS [None]
  - ORAL INFECTION [None]
  - ALVEOLAR OSTEITIS [None]
  - LUNG HYPERINFLATION [None]
  - INSOMNIA [None]
  - SWELLING [None]
  - SINUSITIS [None]
  - EMPHYSEMA [None]
  - KYPHOSIS [None]
  - FEMUR FRACTURE [None]
  - OEDEMA PERIPHERAL [None]
  - BASAL CELL CARCINOMA [None]
  - VOMITING [None]
  - MUSCULAR WEAKNESS [None]
  - INFECTION [None]
  - CHRONIC SINUSITIS [None]
  - VOCAL CORD PARALYSIS [None]
  - ARTHRALGIA [None]
  - GASTROOESOPHAGEAL REFLUX DISEASE [None]
  - DEAFNESS [None]
  - SOFT TISSUE NEOPLASM [None]
  - MASS [None]
  - FALL [None]
  - DYSPNOEA [None]
  - HYPOAESTHESIA [None]
  - NEPHROLITHIASIS [None]
  - GINGIVAL DISORDER [None]
  - BONE DISORDER [None]
  - CARDIOMEGALY [None]
  - OSTEOARTHRITIS [None]
  - RIB FRACTURE [None]
  - GASTRIC ULCER [None]
  - CERVICOBRACHIAL SYNDROME [None]
  - SPINAL COMPRESSION FRACTURE [None]
  - FOOT FRACTURE [None]
  - OSTEOPENIA [None]
  - GAIT DISTURBANCE [None]
  - BACK DISORDER [None]
  - ANXIETY [None]
  - DEFORMITY [None]
  - NASAL OBSTRUCTION [None]
  - ULNA FRACTURE [None]
  - ERECTILE DYSFUNCTION [None]
  - OSTEOPOROSIS [None]
  - SPINAL CORD COMPRESSION [None]
  - INFLUENZA LIKE ILLNESS [None]
  - HYPOXIA [None]
  - BONE NEOPLASM [None]
  - HEADACHE [None]
  - AORTIC ARTERIOSCLEROSIS [None]
  - CHRONIC OBSTRUCTIVE PULMONARY DISEASE [None]
  - SEBORRHOEIC KERATOSIS [None]
  - OEDEMA [None]
  - OSTEOMYELITIS [None]
  - OSTEOGENESIS IMPERFECTA [None]
  - NAUSEA [None]
  - BACK PAIN [None]
  - MUSCLE SPASMS [None]
